FAERS Safety Report 10448557 (Version 1)
Quarter: 2014Q3

REPORT INFORMATION
  Report Type: Spontaneous
  Country: US (occurrence: US)
  Receive Date: 20140911
  Receipt Date: 20140911
  Transmission Date: 20150326
  Serious: Yes (Other)
  Sender: FDA-Public Use
  Company Number: PHHY2014US111505

PATIENT
  Age: 45 Year
  Sex: Female

DRUGS (2)
  1. IRINOTECAN [Suspect]
     Active Substance: IRINOTECAN
     Indication: ASTROCYTOMA
  2. BEVACIZUMAB [Suspect]
     Active Substance: BEVACIZUMAB
     Indication: ASTROCYTOMA

REACTIONS (8)
  - Aphasia [Recovering/Resolving]
  - Monoparesis [Not Recovered/Not Resolved]
  - Loss of consciousness [Recovering/Resolving]
  - Ischaemic stroke [Recovering/Resolving]
  - Intracranial aneurysm [Recovered/Resolved]
  - Hydrocephalus [Recovering/Resolving]
  - Hemiparesis [Recovering/Resolving]
  - Subarachnoid haemorrhage [Recovering/Resolving]
